FAERS Safety Report 4552757-7 (Version None)
Quarter: 2005Q1

REPORT INFORMATION
  Report Type: 
  Country: None (occurrence: None)
  Receive Date: 20050114
  Receipt Date: 20050103
  Transmission Date: 20050727
  Serious: Yes (Hospitalization)
  Sender: FDA-Public Use
  Company Number: FR-JNJFOC-20050100365

PATIENT
  Age: 78 Year
  Sex: Male
  Weight: 84 kg

DRUGS (4)
  1. DURAGESIC [Suspect]
     Indication: ARTERITIS
     Route: 062
  2. KARDEGIC [Concomitant]
     Route: 065
  3. ZOCOR [Concomitant]
     Route: 065
  4. SEROPRAM [Concomitant]
     Route: 065

REACTIONS (4)
  - DISORIENTATION [None]
  - DYSARTHRIA [None]
  - HYPOTONIA [None]
  - MIOSIS [None]
